FAERS Safety Report 13799079 (Version 1)
Quarter: 2017Q3

REPORT INFORMATION
  Report Type: Spontaneous
  Country: US (occurrence: US)
  Receive Date: 20170727
  Receipt Date: 20170727
  Transmission Date: 20171127
  Serious: No
  Sender: FDA-Public Use
  Company Number: US-JNJFOC-20161215225

PATIENT
  Age: 79 Year
  Sex: Female
  Weight: 56.7 kg

DRUGS (3)
  1. WOMENS ROGAINE [Suspect]
     Active Substance: MINOXIDIL
     Route: 061
  2. HYDROCODONE [Concomitant]
     Active Substance: HYDROCODONE
     Indication: BACK PAIN
     Dosage: 1-2 TABLET PER DAY SINCE  3-4 YEARS
     Route: 065
  3. WOMENS ROGAINE [Suspect]
     Active Substance: MINOXIDIL
     Indication: ALOPECIA
     Dosage: 1ML DROPPER, 2X DAILY
     Route: 061
     Dates: start: 201611, end: 20161214

REACTIONS (1)
  - Alopecia [Not Recovered/Not Resolved]
